FAERS Safety Report 17297277 (Version 1)
Quarter: 2020Q1

REPORT INFORMATION
  Report Type: Spontaneous
  Country: FR (occurrence: FR)
  Receive Date: 20200122
  Receipt Date: 20200122
  Transmission Date: 20200409
  Serious: Yes (Hospitalization)
  Sender: FDA-Public Use
  Company Number: FR-ROCHE-2524716

PATIENT
  Age: 34 Year
  Sex: Female
  Weight: 49.5 kg

DRUGS (1)
  1. RIVOTRIL [Suspect]
     Active Substance: CLONAZEPAM
     Indication: ANXIETY
     Dosage: ORAL DROP SOLUTION, 2.5 MG/ML
     Route: 048
     Dates: start: 2003, end: 2003

REACTIONS (3)
  - Depressed level of consciousness [Recovered/Resolved]
  - Facial paralysis [Recovered/Resolved]
  - Dizziness [Recovered/Resolved]

NARRATIVE: CASE EVENT DATE: 2003
